FAERS Safety Report 21812629 (Version 1)
Quarter: 2023Q1

REPORT INFORMATION
  Report Type: Spontaneous
  Country: RU (occurrence: RU)
  Receive Date: 20230103
  Receipt Date: 20230103
  Transmission Date: 20230417
  Serious: Yes (Other)
  Sender: FDA-Public Use
  Company Number: RU-002147023-NVSC2022RU302078

PATIENT
  Age: 25 Year
  Sex: Female
  Weight: 58 kg

DRUGS (6)
  1. AMOXICILLIN\CLAVULANATE POTASSIUM [Suspect]
     Active Substance: AMOXICILLIN\CLAVULANATE POTASSIUM
     Indication: Prophylaxis
     Dosage: 1200 MG
     Route: 042
     Dates: start: 20221206, end: 20221206
  2. ATROPINE [Concomitant]
     Active Substance: ATROPINE
     Indication: Premedication
     Dosage: 0.8 ML
     Route: 058
     Dates: start: 20221206, end: 20221206
  3. KETOPROFEN [Concomitant]
     Active Substance: KETOPROFEN
     Indication: Premedication
     Dosage: 2 ML
     Route: 030
     Dates: start: 20221206, end: 20221206
  4. RINGERS SOLUTION [Concomitant]
     Active Substance: CALCIUM CHLORIDE\POTASSIUM CHLORIDE\SODIUM CHLORIDE
     Indication: Hypotension
     Dosage: 1000 MEQ/ML
     Route: 042
     Dates: start: 20221206, end: 20221206
  5. PROPOFOL LIPURO [Concomitant]
     Active Substance: PROPOFOL
     Indication: Anaesthesia
     Dosage: 40 MG
     Route: 042
     Dates: start: 20221206, end: 20221206
  6. MIDAZOLAM [Concomitant]
     Active Substance: MIDAZOLAM
     Indication: Anaesthesia
     Dosage: 1 ML
     Route: 030
     Dates: start: 20221206, end: 20221206

REACTIONS (3)
  - Loss of consciousness [Recovered/Resolved]
  - Sopor [Recovered/Resolved]
  - Pain [Recovered/Resolved]
